FAERS Safety Report 14173076 (Version 2)
Quarter: 2017Q4

REPORT INFORMATION
  Report Type: Spontaneous
  Country: AU (occurrence: AU)
  Receive Date: 20171109
  Receipt Date: 20171208
  Transmission Date: 20180321
  Serious: Yes (Other)
  Sender: FDA-Public Use
  Company Number: AU-APOTEX-2017AP020778

PATIENT
  Sex: Female

DRUGS (1)
  1. APO-LETROZOLE [Suspect]
     Active Substance: LETROZOLE
     Indication: BREAST CANCER
     Dosage: 2.5 MG, QD
     Route: 048

REACTIONS (8)
  - Swelling face [Unknown]
  - Dyspnoea [Unknown]
  - Mouth swelling [Unknown]
  - Hypersensitivity [Unknown]
  - Lip swelling [Unknown]
  - Eye swelling [Unknown]
  - Food allergy [Unknown]
  - Chest discomfort [Unknown]
